FAERS Safety Report 10341270 (Version 2)
Quarter: 2017Q2

REPORT INFORMATION
  Report Type: Spontaneous
  Country: US (occurrence: US)
  Receive Date: 20140725
  Receipt Date: 20170602
  Transmission Date: 20170829
  Serious: No
  Sender: FDA-Public Use
  Company Number: US-009507513-1407USA011566

PATIENT
  Age: 25 Year
  Sex: Female
  Weight: 97.51 kg

DRUGS (1)
  1. NEXPLANON [Suspect]
     Active Substance: ETONOGESTREL
     Indication: CONTRACEPTION
     Dosage: 1 SINGLE ROD, UNK
     Route: 059
     Dates: start: 20131005

REACTIONS (2)
  - Migration of implanted drug [Not Recovered/Not Resolved]
  - Device kink [Not Recovered/Not Resolved]

NARRATIVE: CASE EVENT DATE: 20140716
